FAERS Safety Report 9032936 (Version 1)
Quarter: 2013Q1

REPORT INFORMATION
  Report Type: Spontaneous
  Country: GB (occurrence: GB)
  Receive Date: 20130128
  Receipt Date: 20130128
  Transmission Date: 20140127
  Serious: Yes (Hospitalization)
  Sender: FDA-Public Use
  Company Number: GB-ACCORD-016047

PATIENT
  Age: 79 Year
  Sex: Female

DRUGS (1)
  1. GLIMEPIRIDE [Suspect]
     Indication: DIABETES MELLITUS
     Route: 048
     Dates: start: 201112

REACTIONS (2)
  - Myalgia [Recovering/Resolving]
  - Pain in extremity [Recovering/Resolving]
